FAERS Safety Report 7374641-6 (Version None)
Quarter: 2011Q1

REPORT INFORMATION
  Report Type: 
  Country: None (occurrence: None)
  Receive Date: 20110325
  Receipt Date: 20100608
  Transmission Date: 20110831
  Serious: No
  Sender: FDA-Public Use
  Company Number: US-MYLANLABS-2010S1010291

PATIENT
  Age: 36 Year
  Sex: Male

DRUGS (2)
  1. FENTANYL-100 [Suspect]
     Indication: BACK PAIN
     Dosage: CHANGES PATCHES Q3D
     Route: 062
     Dates: start: 20080101, end: 20090101
  2. FENTANYL-100 [Suspect]
     Dosage: CHANGED PATCHES Q3D
     Route: 062
     Dates: start: 20090101

REACTIONS (2)
  - APPLICATION SITE EROSION [None]
  - APPLICATION SITE IRRITATION [None]
